FAERS Safety Report 23959952 (Version 1)
Quarter: 2024Q2

REPORT INFORMATION
  Report Type: Spontaneous
  Country: AU (occurrence: AU)
  Receive Date: 20240611
  Receipt Date: 20240611
  Transmission Date: 20240716
  Serious: Yes (Congenital Anomaly, Other)
  Sender: FDA-Public Use
  Company Number: AU-STRIDES ARCOLAB LIMITED-2024SP006411

PATIENT

DRUGS (9)
  1. LEVETIRACETAM [Suspect]
     Active Substance: LEVETIRACETAM
     Indication: Product used for unknown indication
     Dosage: UNK (THE PATIENT^S MOTHER RECEIVED LEVETIRACETAM 8000MG FOR EPILEPSY DURING PREGNANCY)
     Route: 064
  2. PHENOBARBITAL [Suspect]
     Active Substance: PHENOBARBITAL
     Indication: Product used for unknown indication
     Dosage: UNK (THE PATIENT^S MONTHER RECEIVED PHENOBARBITAL 50MG FOR EPILEPSY DURING PREGNANCY)
     Route: 064
  3. PHENOBARBITAL [Suspect]
     Active Substance: PHENOBARBITAL
     Dosage: UNK (THE PATIENT^S MOTHER RECEIVED PHENOBARBITAL 300MG FOR EPILEPSY DURING PREGNANCY)
     Route: 064
  4. LACOSAMIDE [Suspect]
     Active Substance: LACOSAMIDE
     Indication: Product used for unknown indication
     Dosage: UNK (THE PATIENT^S MOTHER RECEIVED LACOSAMIDE POLYTHERAPY FOR EPILEPSY DURING PREGNANCY)
     Route: 064
  5. CLOBAZAM [Suspect]
     Active Substance: CLOBAZAM
     Indication: Product used for unknown indication
     Dosage: UNK (THE PATIENT^S MOTHER RECEIVED CLOBAZAM 40MG FOR EPILEPSY DURING PREGNANCY)
     Route: 064
  6. CLOBAZAM [Suspect]
     Active Substance: CLOBAZAM
     Dosage: UNK (THE PATIENT^S MOTHER RECEIVED CLOBAZAM 60MG FOR EPILEPSY DURING PREGNANCY)
     Route: 064
  7. LAMOTRIGINE [Suspect]
     Active Substance: LAMOTRIGINE
     Indication: Product used for unknown indication
     Dosage: UNK (THE PATIENT^S MOTHER RECEIVED LAMOTRIGINE 100MG FOR EPILEPSY DURING PREGNANCY)
     Route: 064
  8. PHENYTOIN [Suspect]
     Active Substance: PHENYTOIN
     Indication: Product used for unknown indication
     Dosage: UNK (THE PATIENT^S MOTHER RECEIVED PHENYTOIN 600MG FOR EPILEPSY DURING PREGNANCY)
     Route: 064
  9. ZONISAMIDE [Suspect]
     Active Substance: ZONISAMIDE
     Indication: Product used for unknown indication
     Dosage: UNK (THE PATIENT^S MOTHER RECEIVED ZONISAMIDE 800MG FOR EPILEPSY DURING PREGNANCY)
     Route: 064

REACTIONS (2)
  - Foetal malformation [Unknown]
  - Foetal exposure during pregnancy [Unknown]
